FAERS Safety Report 6546041-X (Version None)
Quarter: 2010Q1

REPORT INFORMATION
  Report Type: 
  Country: None (occurrence: None)
  Receive Date: 20100121
  Receipt Date: 20100121
  Transmission Date: 20100710
  Serious: Yes (Hospitalization, Other)
  Sender: FDA-Public Use
  Company Number: None

PATIENT
  Age: 51 Year
  Sex: Female
  Weight: 65.318 kg

DRUGS (2)
  1. PROPOFOL [Suspect]
     Indication: ANAESTHESIA
     Dosage: 250MG TITRATED IV
     Route: 042
     Dates: start: 20100113, end: 20100113
  2. PROPOFOL [Suspect]
     Indication: ENDOSCOPY
     Dosage: 250MG TITRATED IV
     Route: 042
     Dates: start: 20100113, end: 20100113

REACTIONS (2)
  - NERVOUS SYSTEM DISORDER [None]
  - POST PROCEDURAL COMPLICATION [None]
